FAERS Safety Report 6468881-8 (Version None)
Quarter: 2009Q4

REPORT INFORMATION
  Report Type: 
  Country: None (occurrence: None)
  Receive Date: 20091203
  Receipt Date: 20080820
  Transmission Date: 20100525
  Serious: Yes (Hospitalization)
  Sender: FDA-Public Use
  Company Number: US-ELI_LILLY_AND_COMPANY-US_020988316

PATIENT
  Age: 16 Year
  Sex: Female

DRUGS (7)
  1. OLANZAPINE [Suspect]
     Dosage: 5 MG, EACH MORNING
  2. OLANZAPINE [Suspect]
     Dosage: 10 MG, DAILY (1/D)
     Route: 048
  3. SERTRALINE HCL [Concomitant]
     Dosage: 50 MG, DAILY (1/D)
  4. PAROXETINE [Concomitant]
     Indication: AGITATION
     Dosage: UNK, UNKNOWN
  5. ALPRAZOLAM [Concomitant]
     Indication: AGITATION
     Dosage: UNK, UNKNOWN
  6. HALOPERIDOL [Concomitant]
     Dosage: 2 MG, DAILY (1/D)
  7. LORAZEPAM [Concomitant]
     Dosage: 2 MG, 3/D

REACTIONS (6)
  - ANAEMIA [None]
  - ARACHNOID CYST [None]
  - CATATONIA [None]
  - ELECTROENCEPHALOGRAM ABNORMAL [None]
  - NEUROLEPTIC MALIGNANT SYNDROME [None]
  - URINARY TRACT INFECTION [None]
